FAERS Safety Report 4511626-9 (Version None)
Quarter: 2004Q4

REPORT INFORMATION
  Report Type: 
  Country: None (occurrence: None)
  Receive Date: 20041129
  Receipt Date: 20041020
  Transmission Date: 20050328
  Serious: No
  Sender: FDA-Public Use
  Company Number: US-BRISTOL-MYERS SQUIBB COMPANY-12737813

PATIENT
  Age: 17 Year
  Sex: Male
  Weight: 79 kg

DRUGS (3)
  1. ABILIFY [Suspect]
     Indication: DEPRESSION
     Route: 048
     Dates: start: 20041014
  2. ABILIFY [Suspect]
     Indication: PARANOIA
     Route: 048
     Dates: start: 20041014
  3. LEXAPRO [Concomitant]

REACTIONS (3)
  - DYSTONIA [None]
  - HYPERHIDROSIS [None]
  - STARING [None]
